FAERS Safety Report 4536068-1 (Version None)
Quarter: 2004Q4

REPORT INFORMATION
  Report Type: 
  Country: None (occurrence: None)
  Receive Date: 20041223
  Receipt Date: 20041012
  Transmission Date: 20050328
  Serious: Yes (Hospitalization)
  Sender: FDA-Public Use
  Company Number: JP-BRISTOL-MYERS SQUIBB COMPANY-12735775

PATIENT
  Age: 37 Year
  Sex: Male

DRUGS (7)
  1. GATIFLO TABS 100 MG [Suspect]
     Indication: BRONCHITIS ACUTE
     Dosage: DOSE ACTUALLY TAKEN: 200 MG
     Route: 048
     Dates: start: 20041008, end: 20041008
  2. SOLANTAL [Suspect]
     Indication: BRONCHITIS ACUTE
     Dosage: DOSE ACTUALLY TAKEN: 100 MG
     Route: 048
     Dates: start: 20041008, end: 20041008
  3. RESPLEN [Concomitant]
     Dosage: DOSE ACTUALLY TAKEN: 30 MG
     Route: 048
     Dates: start: 20041008, end: 20041008
  4. DASEN [Concomitant]
     Dosage: DOSE ACTUALLY TAKEN: 10 MG
     Route: 048
     Dates: start: 20041008, end: 20041008
  5. ADALAT CC [Concomitant]
     Dosage: INITIATED AT 40 MG DAILY, 20 MG DAILY SINCE 14-MAY-2004
     Route: 048
     Dates: start: 20040326
  6. BLOPRESS [Concomitant]
     Route: 048
     Dates: start: 20040430
  7. FLUTICASONE PROPIONATE [Concomitant]
     Route: 055
     Dates: start: 20040605

REACTIONS (3)
  - DYSPNOEA [None]
  - HYPOAESTHESIA ORAL [None]
  - URTICARIA [None]
